FAERS Safety Report 8538817-4 (Version None)
Quarter: 2012Q3

REPORT INFORMATION
  Report Type: 
  Country: None (occurrence: None)
  Receive Date: 20120726
  Receipt Date: 20120712
  Transmission Date: 20120928
  Serious: Yes (Death, Hospitalization)
  Sender: FDA-Public Use
  Company Number: CA-RANBAXY-2012US-58130

PATIENT
  Age: 39 Year
  Sex: Male

DRUGS (5)
  1. OXYCODONE HCL [Suspect]
     Indication: RENAL PAIN
     Dosage: UNK
     Route: 065
  2. MORPHINE SULFATE [Suspect]
     Indication: RENAL PAIN
     Dosage: UNK
     Route: 065
  3. OXYCODONE HCL [Suspect]
     Dosage: 175MG
     Route: 048
  4. MEPERIDINE HCL [Suspect]
     Indication: RENAL PAIN
     Route: 065
  5. FENTANYL [Suspect]
     Indication: RENAL PAIN
     Dosage: UNK
     Route: 065

REACTIONS (3)
  - DRUG DEPENDENCE [None]
  - DRUG WITHDRAWAL SYNDROME [None]
  - PSYCHOTIC DISORDER [None]
